FAERS Safety Report 25627597 (Version 1)
Quarter: 2025Q3

REPORT INFORMATION
  Report Type: Spontaneous
  Country: US (occurrence: None)
  Receive Date: 20250730
  Receipt Date: 20250730
  Transmission Date: 20251020
  Serious: Yes (Hospitalization)
  Sender: FDA-CTU
  Company Number: None

PATIENT
  Age: 58 Year
  Sex: Male
  Weight: 145.7 kg

DRUGS (3)
  1. YESCARTA [Suspect]
     Active Substance: AXICABTAGENE CILOLEUCEL
     Indication: Diffuse large B-cell lymphoma
     Route: 041
     Dates: start: 20250721, end: 20250721
  2. ANAKINRA [Concomitant]
     Active Substance: ANAKINRA
     Dates: start: 20250726
  3. TOCILIZUMAB [Concomitant]
     Active Substance: TOCILIZUMAB
     Dates: start: 20250724, end: 20250725

REACTIONS (2)
  - Agitation [None]
  - Confusional state [None]

NARRATIVE: CASE EVENT DATE: 20250726
